FAERS Safety Report 5353007-4 (Version None)
Quarter: 2007Q2

REPORT INFORMATION
  Report Type: 
  Country: None (occurrence: None)
  Receive Date: 20070611
  Receipt Date: 20070605
  Transmission Date: 20071010
  Serious: Yes (Other)
  Sender: FDA-Public Use
  Company Number: GB-PFIZER INC-2007039295

PATIENT
  Age: 68 Year
  Sex: Male

DRUGS (3)
  1. DETRUSITOL XL [Suspect]
     Route: 048
  2. ANALGESICS [Concomitant]
  3. LANSOPRAZOLE [Concomitant]

REACTIONS (1)
  - GYNAECOMASTIA [None]
